FAERS Safety Report 12759954 (Version 2)
Quarter: 2016Q3

REPORT INFORMATION
  Report Type: Spontaneous
  Country: CH (occurrence: CH)
  Receive Date: 20160919
  Receipt Date: 20160926
  Transmission Date: 20161109
  Serious: Yes (Life-Threatening, Disabling, Other)
  Sender: FDA-Public Use
  Company Number: CH-UCBSA-2016035513

PATIENT
  Age: 51 Year
  Sex: Female

DRUGS (5)
  1. KEPPRA [Suspect]
     Active Substance: LEVETIRACETAM
     Dosage: 500 MG, 2X/DAY (BID)
     Route: 048
     Dates: start: 201608, end: 201609
  2. PANTOZOL [Concomitant]
     Active Substance: PANTOPRAZOLE SODIUM
     Indication: GASTRITIS PROPHYLAXIS
     Dosage: 20 MG, ONCE DAILY (QD)
  3. KEPPRA [Suspect]
     Active Substance: LEVETIRACETAM
     Indication: GENERALISED TONIC-CLONIC SEIZURE
     Dosage: UNK
     Dates: start: 201608, end: 201608
  4. FORTECORTIN [Suspect]
     Active Substance: DEXAMETHASONE
     Indication: GLIOBLASTOMA MULTIFORME
     Dosage: STRENGTH: 4 MG, DOSE UNCLEAR
     Route: 048
     Dates: start: 201607
  5. OXCARBAZEPINE. [Concomitant]
     Active Substance: OXCARBAZEPINE
     Indication: GENERALISED TONIC-CLONIC SEIZURE
     Dosage: UNK
     Dates: start: 201607, end: 201608

REACTIONS (6)
  - Suicidal behaviour [Unknown]
  - Craniocerebral injury [Recovering/Resolving]
  - Contusion [Recovering/Resolving]
  - Acute psychosis [Unknown]
  - Fall [Recovering/Resolving]
  - Facial bones fracture [Recovering/Resolving]

NARRATIVE: CASE EVENT DATE: 201608
